FAERS Safety Report 26132281 (Version 1)
Quarter: 2025Q4

REPORT INFORMATION
  Report Type: Other
  Country: US (occurrence: US)
  Receive Date: 20251208
  Receipt Date: 20251208
  Transmission Date: 20260119
  Serious: Yes (Other)
  Sender: AIR PRODUCTS
  Company Number: US-Air Products and Chemicals-2190112

PATIENT
  Age: 85 Year
  Sex: Female

DRUGS (1)
  1. OXYGEN [Suspect]
     Active Substance: OXYGEN

REACTIONS (1)
  - Cutaneous B-cell lymphoma [Unknown]
